FAERS Safety Report 8017371-X (Version None)
Quarter: 2012Q1

REPORT INFORMATION
  Report Type: 
  Country: None (occurrence: None)
  Receive Date: 20120102
  Receipt Date: 20111226
  Transmission Date: 20120608
  Serious: Yes (Death, Other)
  Sender: FDA-Public Use
  Company Number: JP-ROCHE-762271

PATIENT
  Sex: Male
  Weight: 47 kg

DRUGS (14)
  1. CARBOPLATIN [Suspect]
     Route: 041
     Dates: start: 20101202, end: 20101202
  2. AVASTIN [Suspect]
     Route: 041
     Dates: start: 20101202, end: 20101202
  3. METHYCOBAL [Concomitant]
     Route: 048
     Dates: start: 20101009, end: 20101220
  4. AVASTIN [Suspect]
     Indication: LUNG ADENOCARCINOMA METASTATIC
     Dosage: DOSAGE IS UNCERTAIN.
     Route: 041
     Dates: start: 20101019, end: 20101019
  5. PACLITAXEL [Suspect]
     Route: 041
     Dates: start: 20101202, end: 20101202
  6. DEPAS [Concomitant]
     Route: 048
     Dates: start: 20101009, end: 20101220
  7. AMOBAN [Concomitant]
     Route: 048
     Dates: start: 20101009, end: 20101220
  8. RESTAMIN [Concomitant]
     Route: 048
     Dates: start: 20101019, end: 20101019
  9. PACLITAXEL [Suspect]
     Indication: LUNG ADENOCARCINOMA METASTATIC
     Dosage: DOSAGE IS UNCERTAIN
     Route: 041
     Dates: start: 20101019, end: 20101019
  10. CARBOPLATIN [Suspect]
     Indication: LUNG ADENOCARCINOMA METASTATIC
     Dosage: DOSAGE IS UNCERTAIN
     Route: 041
     Dates: start: 20101019, end: 20101019
  11. FAMOTIDINE [Concomitant]
     Route: 048
     Dates: start: 20101009, end: 20101220
  12. LOXOPROFEN SODIUM [Concomitant]
     Route: 048
     Dates: start: 20101009, end: 20101220
  13. MUCOSTA [Concomitant]
     Route: 048
     Dates: start: 20101009, end: 20101220
  14. RESTAMIN [Concomitant]
     Route: 048
     Dates: start: 20101202, end: 20101202

REACTIONS (3)
  - TUMOUR LYSIS SYNDROME [None]
  - ICHTHYOSIS ACQUIRED [None]
  - DISEASE PROGRESSION [None]
